FAERS Safety Report 7906812-1 (Version None)
Quarter: 2011Q4

REPORT INFORMATION
  Report Type: 
  Country: None (occurrence: None)
  Receive Date: 20111110
  Receipt Date: 20111101
  Transmission Date: 20120403
  Serious: Yes (Death, Hospitalization)
  Sender: FDA-Public Use
  Company Number: MX-GILEAD-2011-0045773

PATIENT
  Sex: Male

DRUGS (1)
  1. TRUVADA [Suspect]
     Indication: HIV INFECTION
     Dosage: UNK
     Route: 048
     Dates: start: 20080401, end: 20111001

REACTIONS (4)
  - RENAL FAILURE CHRONIC [None]
  - METABOLIC ACIDOSIS [None]
  - DYSPNOEA EXERTIONAL [None]
  - DEATH [None]
